FAERS Safety Report 7330892-8 (Version None)
Quarter: 2011Q1

REPORT INFORMATION
  Report Type: 
  Country: None (occurrence: None)
  Receive Date: 20110304
  Receipt Date: 20110225
  Transmission Date: 20110831
  Serious: Yes (Other)
  Sender: FDA-Public Use
  Company Number: US-RB-015094-10

PATIENT
  Age: 29 Year
  Sex: Male

DRUGS (5)
  1. SUBOXONE [Suspect]
     Indication: DRUG DEPENDENCE
     Route: 060
     Dates: start: 20100101, end: 20100101
  2. SUBUTEX [Suspect]
     Indication: DRUG DEPENDENCE
     Route: 060
     Dates: start: 20100101, end: 20100101
  3. SUBOXONE [Suspect]
     Indication: DRUG DEPENDENCE
     Dosage: UNKNOWN DOSING DETAILS
     Route: 065
     Dates: start: 20100101
  4. SUBOXONE [Suspect]
     Route: 060
     Dates: start: 20100101
  5. SUBOXONE [Suspect]
     Route: 060
     Dates: start: 20100601, end: 20100101

REACTIONS (5)
  - CARDIAC FLUTTER [None]
  - BLOOD TESTOSTERONE DECREASED [None]
  - FATIGUE [None]
  - DYSPNOEA [None]
  - HEADACHE [None]
